FAERS Safety Report 26207762 (Version 1)
Quarter: 2025Q4

REPORT INFORMATION
  Report Type: Spontaneous
  Country: CA (occurrence: CA)
  Receive Date: 20251229
  Receipt Date: 20251229
  Transmission Date: 20260117
  Serious: Yes (Life-Threatening, Other)
  Sender: BAYER HEALTHCARE PHARMACEUTICALS INC.
  Company Number: CA-BAYER-2025A166669

PATIENT
  Age: 66 Year

DRUGS (1)
  1. GADOBUTROL [Suspect]
     Active Substance: GADOBUTROL
     Dosage: UNK UNK, ONCE
     Route: 042

REACTIONS (4)
  - Feeling hot [Unknown]
  - Delusional perception [Unknown]
  - Altered state of consciousness [Unknown]
  - Breath sounds abnormal [Unknown]
